FAERS Safety Report 5381641-4 (Version None)
Quarter: 2007Q3

REPORT INFORMATION
  Report Type: 
  Country: None (occurrence: None)
  Receive Date: 20070709
  Receipt Date: 20070629
  Transmission Date: 20080115
  Serious: Yes (Other)
  Sender: FDA-Public Use
  Company Number: PHBS2007BR10994

PATIENT
  Age: 66 Year
  Sex: Male
  Weight: 74 kg

DRUGS (4)
  1. FORASEQ [Suspect]
     Indication: LUNG DISORDER
     Dosage: UNK, BID
  2. MONOCORDIL [Concomitant]
     Indication: VENOUS OCCLUSION
     Dosage: 20 MG, TID
     Route: 048
  3. BALCOR [Concomitant]
     Indication: VENOUS OCCLUSION
     Dosage: 60 MG, TID
     Route: 048
  4. TELOL G [Concomitant]
     Indication: VENOUS OCCLUSION
     Dosage: 200 MG, BID

REACTIONS (2)
  - CARDIAC OPERATION [None]
  - VASCULAR GRAFT [None]
